FAERS Safety Report 25613373 (Version 1)
Quarter: 2025Q3

REPORT INFORMATION
  Report Type: Spontaneous
  Country: US (occurrence: None)
  Receive Date: 20250728
  Receipt Date: 20250728
  Transmission Date: 20251021
  Serious: Yes (Disabling)
  Sender: FDA-CTU
  Company Number: None

PATIENT
  Sex: Female

DRUGS (1)
  1. LITHIUM [Suspect]
     Active Substance: LITHIUM
     Indication: Bipolar disorder

REACTIONS (4)
  - Product prescribing issue [None]
  - Wrong product administered [None]
  - Hypothyroidism [None]
  - Metal poisoning [None]

NARRATIVE: CASE EVENT DATE: 19920101
